FAERS Safety Report 7421967-3 (Version None)
Quarter: 2011Q2

REPORT INFORMATION
  Report Type: 
  Country: None (occurrence: None)
  Receive Date: 20110418
  Receipt Date: 20110404
  Transmission Date: 20111010
  Serious: Yes (Other)
  Sender: FDA-Public Use
  Company Number: US-CELGENEUS-163-21880-11040333

PATIENT
  Sex: Male
  Weight: 99.88 kg

DRUGS (12)
  1. REVLIMID [Suspect]
     Indication: MULTIPLE MYELOMA
     Dosage: 5 MILLIGRAM
     Route: 048
     Dates: start: 20090901
  2. LISINOPRIL [Concomitant]
     Dosage: 10 MILLIGRAM
     Route: 048
     Dates: start: 20050101
  3. VITAMIN D [Concomitant]
     Dosage: 1000 MILLIGRAM
     Route: 048
     Dates: start: 20090101
  4. MIRALAX [Concomitant]
     Route: 048
     Dates: start: 20100910
  5. ZOMETA [Concomitant]
     Route: 065
     Dates: start: 20091001
  6. REVLIMID [Suspect]
     Dosage: 5 MILLIGRAM
     Route: 048
     Dates: start: 20100630
  7. ATIVAN [Concomitant]
     Dosage: 1 MILLIGRAM
     Route: 048
     Dates: start: 20030101
  8. COUMADIN [Concomitant]
     Dosage: 2.5-5MG
     Route: 048
     Dates: start: 20100101
  9. FINASTERIDE [Concomitant]
     Dosage: 5 MILLIGRAM
     Route: 048
     Dates: start: 20060101
  10. GLYBURIDE [Concomitant]
     Dosage: 10 MILLIGRAM
     Route: 048
     Dates: start: 20030101
  11. FLEET [Concomitant]
     Route: 065
     Dates: start: 20100910
  12. ASPIRIN [Concomitant]
     Dosage: 81 MILLIGRAM
     Route: 048
     Dates: start: 20070101

REACTIONS (2)
  - OROPHARYNGEAL PAIN [None]
  - HAEMOPTYSIS [None]
